FAERS Safety Report 9320371 (Version 1)
Quarter: 2013Q2

REPORT INFORMATION
  Report Type: Spontaneous
  Country: ES (occurrence: ES)
  Receive Date: 20130530
  Receipt Date: 20130530
  Transmission Date: 20140414
  Serious: Yes (Hospitalization)
  Sender: FDA-Public Use
  Company Number: ES-ELI_LILLY_AND_COMPANY-ES201305007010

PATIENT
  Age: 82 Year
  Sex: Female
  Weight: 78 kg

DRUGS (9)
  1. FORSTEO [Suspect]
     Indication: OSTEOPOROSIS
     Dosage: UNK, UNKNOWN
     Route: 058
     Dates: start: 20101015, end: 20101103
  2. CALCIUM [Concomitant]
     Indication: OSTEOPOROSIS
     Dosage: 1 DF, QD
     Route: 048
  3. SINTROM [Concomitant]
     Indication: ARRHYTHMIA
     Dosage: UNK, AS NEEDED (DEPENDING ON HAEMATOLOGY RESULTS
     Route: 048
  4. LYRICA [Concomitant]
     Indication: INSOMNIA
     Dosage: 1 DF, QD
     Route: 048
  5. VOLTAREN                                /SCH/ [Concomitant]
     Indication: PAIN
     Dosage: UNK, AS NEEDED
     Route: 048
  6. TERMALGIN [Concomitant]
     Indication: PAIN
     Dosage: UNK, AS NEEDED
     Route: 048
  7. MORFINA                            /00036302/ [Concomitant]
     Indication: PAIN
     Dosage: 50 UG, QD
     Route: 062
  8. MORFINA                            /00036302/ [Concomitant]
     Dosage: 25 UG, QD
     Route: 062
     Dates: start: 20101105
  9. FOSAMAX [Concomitant]
     Indication: OSTEOPOROSIS
     Dosage: 1 DF, MONTHLY (1/M)
     Route: 048

REACTIONS (6)
  - Disorientation [Unknown]
  - Psychotic disorder [Recovered/Resolved]
  - Decreased appetite [Recovered/Resolved]
  - Depression [Recovered/Resolved]
  - Vomiting [Recovered/Resolved]
  - Urinary tract infection [Unknown]
